FAERS Safety Report 16931325 (Version 1)
Quarter: 2019Q4

REPORT INFORMATION
  Report Type: Spontaneous
  Country: US (occurrence: US)
  Receive Date: 20191017
  Receipt Date: 20191017
  Transmission Date: 20200122
  Serious: Yes (Other)
  Sender: FDA-Public Use
  Company Number: US-ASTRAZENECA-2019SF46543

PATIENT
  Age: 54 Year
  Sex: Male

DRUGS (1)
  1. FARXIGA [Suspect]
     Active Substance: DAPAGLIFLOZIN PROPANEDIOL
     Route: 048
     Dates: start: 20190717, end: 20190822

REACTIONS (5)
  - Glomerular filtration rate abnormal [Unknown]
  - Urinary casts [Unknown]
  - Blood creatine increased [Recovered/Resolved]
  - Blood urine present [Unknown]
  - Renal tubular necrosis [Unknown]
